FAERS Safety Report 5856611-X (Version None)
Quarter: 2008Q3

REPORT INFORMATION
  Report Type: 
  Country: None (occurrence: None)
  Receive Date: 20080822
  Receipt Date: 20080822
  Transmission Date: 20090109
  Serious: Yes (Hospitalization)
  Sender: FDA-Public Use
  Company Number: None

PATIENT
  Age: 16 Year
  Sex: Male
  Weight: 86.1834 kg

DRUGS (1)
  1. CONCERTA [Suspect]
     Indication: ATTENTION DEFICIT/HYPERACTIVITY DISORDER
     Dosage: T TABLET 1 TIME DAILY PO
     Route: 048
     Dates: start: 20080728, end: 20080730

REACTIONS (8)
  - CHEST PAIN [None]
  - DISTURBANCE IN ATTENTION [None]
  - DRUG INEFFECTIVE [None]
  - DYSPEPSIA [None]
  - HALLUCINATION [None]
  - INCORRECT DOSE ADMINISTERED [None]
  - INSOMNIA [None]
  - PHYSICAL ASSAULT [None]
